FAERS Safety Report 13417779 (Version 2)
Quarter: 2017Q4

REPORT INFORMATION
  Report Type: Report from Study
  Country: IT (occurrence: IT)
  Receive Date: 20170407
  Receipt Date: 20171025
  Transmission Date: 20180320
  Serious: Yes (Hospitalization)
  Sender: FDA-Public Use
  Company Number: IT-BAXTER-2017BAX014858

PATIENT
  Age: 69 Year
  Sex: Female

DRUGS (15)
  1. ETOPOSIDE TEVA [Suspect]
     Active Substance: ETOPOSIDE
     Indication: CHEMOTHERAPY
     Dosage: THREE CYCLES
     Route: 042
  2. ETOPOSIDE TEVA [Suspect]
     Active Substance: ETOPOSIDE
     Dosage: FOURTH CYCLE
     Route: 042
     Dates: start: 20170124, end: 20170126
  3. DESAMETASONE [Concomitant]
     Active Substance: DEXAMETHASONE
     Indication: INFLAMMATION
     Dosage: ANTI INFLAMMATORY
     Route: 042
     Dates: start: 20170124, end: 20170126
  4. HOLOXAN [Suspect]
     Active Substance: IFOSFAMIDE
     Dosage: DOSAGE FORM: SOLUTION FOR INTRAVENOUS INFUSION; FOURTH CYCLE
     Route: 042
     Dates: start: 20170124, end: 20170126
  5. PALONOSETRON HYDROCHLORIDE. [Concomitant]
     Active Substance: PALONOSETRON HYDROCHLORIDE
     Indication: VOMITING
     Dosage: ANTI EMETIC
     Route: 042
     Dates: start: 20170124, end: 20170126
  6. HOLOXAN [Suspect]
     Active Substance: IFOSFAMIDE
     Indication: CHEMOTHERAPY
     Dosage: THREE CYCLES
     Route: 042
  7. EPIRUBICIN HYDROCHLORIDE. [Suspect]
     Active Substance: EPIRUBICIN HYDROCHLORIDE
     Dosage: FOURTH CYCLE
     Route: 042
     Dates: start: 20170124, end: 20170124
  8. CHLORPHENIRAMINE MALEATE. [Concomitant]
     Active Substance: CHLORPHENIRAMINE MALEATE
     Indication: HISTAMINE LEVEL INCREASED
     Dosage: ANTI HISTAMINE
     Route: 042
     Dates: start: 20170124
  9. RITUXIMAB. [Suspect]
     Active Substance: RITUXIMAB
     Indication: BIOTHERAPY
     Dosage: FOURTH CYCLE
     Route: 042
     Dates: start: 20170124, end: 20170124
  10. RANITIDINE HYDROCHLORIDE. [Concomitant]
     Active Substance: RANITIDINE HYDROCHLORIDE
     Indication: HYPERCHLORHYDRIA
     Dosage: ANTI ACID
     Route: 042
     Dates: start: 20170124, end: 20170126
  11. EPIRUBICIN HYDROCHLORIDE. [Suspect]
     Active Substance: EPIRUBICIN HYDROCHLORIDE
     Indication: CHEMOTHERAPY
     Dosage: THREE CYCLES
     Route: 042
  12. MESNA. [Concomitant]
     Active Substance: MESNA
     Indication: PROPHYLACTIC CHEMOTHERAPY
     Route: 042
     Dates: start: 20170124, end: 20170126
  13. RITUXIMAB. [Suspect]
     Active Substance: RITUXIMAB
     Indication: HAEMATOLOGICAL MALIGNANCY
     Dosage: THREE CYCLES
     Route: 042
  14. LONQUEX [Suspect]
     Active Substance: LIPEGFILGRASTIM
     Indication: PROPHYLAXIS
     Route: 058
     Dates: start: 20170128, end: 20170128
  15. APREPITANT. [Concomitant]
     Active Substance: APREPITANT
     Indication: VOMITING
     Dosage: ANTI EMETIC
     Route: 048
     Dates: start: 20170124, end: 20170126

REACTIONS (5)
  - Fungal infection [Recovered/Resolved]
  - Mucosal inflammation [Recovered/Resolved]
  - Dysphagia [Recovered/Resolved]
  - Odynophagia [Recovered/Resolved]
  - Pyrexia [Recovered/Resolved]

NARRATIVE: CASE EVENT DATE: 20170202
